FAERS Safety Report 7928762-7 (Version None)
Quarter: 2011Q4

REPORT INFORMATION
  Report Type: 
  Country: None (occurrence: None)
  Receive Date: 20111118
  Receipt Date: 20111116
  Transmission Date: 20120403
  Serious: Yes (Other)
  Sender: FDA-Public Use
  Company Number: US-B.I. PHARMACEUTICALS,INC./RIDGEFIELD-2011-BP-26397BP

PATIENT
  Sex: Male

DRUGS (7)
  1. CELEBREX [Concomitant]
     Indication: ARTHRALGIA
     Route: 048
     Dates: start: 20100101
  2. PRADAXA [Suspect]
     Indication: ATRIAL FIBRILLATION
     Dosage: 300 MG
     Route: 048
     Dates: start: 20110501
  3. VALACYCLOVIR [Concomitant]
     Indication: HERPES ZOSTER
     Route: 048
     Dates: start: 20110501
  4. FLOMAX [Concomitant]
     Dosage: 0.4 MG
     Route: 048
  5. DIGOXIN [Concomitant]
     Dosage: 0.25 MG
     Route: 048
  6. METOPROLOL TARTRATE [Concomitant]
     Dosage: 50 MG
     Route: 048
  7. HYDROCODONE BITARTRATE [Concomitant]
     Indication: ARTHRALGIA
     Route: 048

REACTIONS (2)
  - ARTHRALGIA [None]
  - LYMPHOMA [None]
